FAERS Safety Report 9421246 (Version 1)
Quarter: 2013Q3

REPORT INFORMATION
  Report Type: Spontaneous
  Country: CA (occurrence: CA)
  Receive Date: 20130725
  Receipt Date: 20130725
  Transmission Date: 20140515
  Serious: Yes (Hospitalization, Other)
  Sender: FDA-Public Use
  Company Number: CA-BAXTER-2013BAX026332

PATIENT
  Age: 61 Year
  Sex: Male

DRUGS (3)
  1. DIANEAL PD4 SOLUTION WITH 1.5% DEXTROSE AND 2.5 MEQ/L CALCIUM [Suspect]
     Indication: PERITONEAL DIALYSIS
     Route: 033
     Dates: start: 200904
  2. DIANEAL PD4 SOLUTION WITH 2.5% DEXTROSE AND 2.5 MEQ/L CALCIUM [Suspect]
     Indication: PERITONEAL DIALYSIS
     Route: 033
     Dates: start: 200904
  3. EXTRANEAL [Suspect]
     Indication: PERITONEAL DIALYSIS
     Route: 033
     Dates: start: 200904

REACTIONS (10)
  - Injury [Recovering/Resolving]
  - Swelling [Recovering/Resolving]
  - Nodule [Recovering/Resolving]
  - Bedridden [Recovered/Resolved]
  - Paralysis [Recovered/Resolved]
  - Joint swelling [Recovered/Resolved]
  - Post-traumatic neck syndrome [Recovered/Resolved]
  - Wound [Recovering/Resolving]
  - Procedural complication [Unknown]
  - Abdominal distension [Unknown]
